FAERS Safety Report 4615573-3 (Version None)
Quarter: 2005Q1

REPORT INFORMATION
  Report Type: 
  Country: None (occurrence: None)
  Receive Date: 20050317
  Receipt Date: 20050308
  Transmission Date: 20050727
  Serious: Yes (Hospitalization, Other)
  Sender: FDA-Public Use
  Company Number: 2004097051

PATIENT
  Age: 76 Year
  Sex: Female

DRUGS (5)
  1. CELEBREX [Suspect]
     Indication: OSTEOARTHRITIS
     Dosage: 200 MG (200 MG, 1 IN 1 D), ORAL
     Route: 048
     Dates: start: 20011020, end: 20031201
  2. ALENDRONATE SODIUM [Concomitant]
  3. FUROSEMIDE [Concomitant]
  4. WARFARIN SODIUM [Concomitant]
  5. PROPAFENONE HCL [Concomitant]

REACTIONS (3)
  - ABSCESS [None]
  - BRADYARRHYTHMIA [None]
  - RENAL FAILURE ACUTE [None]
